FAERS Safety Report 7628703-6 (Version None)
Quarter: 2011Q3

REPORT INFORMATION
  Report Type: 
  Country: None (occurrence: None)
  Receive Date: 20110721
  Receipt Date: 20110721
  Transmission Date: 20111222
  Serious: Yes (Other)
  Sender: FDA-Public Use
  Company Number: None

PATIENT
  Age: 60 Year
  Sex: Female

DRUGS (5)
  1. FAMOTIDINE [Concomitant]
  2. ASPIRIN [Concomitant]
  3. LORAZEPAM [Concomitant]
  4. REVLIMID [Suspect]
     Indication: MULTIPLE MYELOMA
     Dosage: REVLIMID 10 MG ORALLY
     Route: 048
     Dates: start: 20080201, end: 20080501
  5. REVLIMID [Suspect]
     Indication: MULTIPLE MYELOMA
     Dosage: REVLIMID 10 MG ORALLY
     Route: 048
     Dates: start: 20110601

REACTIONS (4)
  - EYELID OEDEMA [None]
  - LACRIMATION INCREASED [None]
  - RASH MACULAR [None]
  - OCULAR HYPERAEMIA [None]
